FAERS Safety Report 8200468-9 (Version None)
Quarter: 2012Q1

REPORT INFORMATION
  Report Type: 
  Country: None (occurrence: None)
  Receive Date: 20120208
  Receipt Date: 20120221
  Transmission Date: 20120608
  Serious: Yes (Other)
  Sender: FDA-Public Use
  Company Number: 2012031337

PATIENT
  Age: 68 Year
  Sex: Female
  Weight: 79.3795 kg

DRUGS (9)
  1. METOPROLOL TARTRATE [Concomitant]
  2. BENADRYL [Concomitant]
  3. ACTONEL [Concomitant]
  4. PREDNISONE TAB [Concomitant]
  5. HIZENTRA [Suspect]
     Indication: IMMUNODEFICIENCY COMMON VARIABLE
     Dosage: (8 G 1X/WEEK SUBCUTANEOUS),
     Route: 058
     Dates: start: 20120213, end: 20120220
  6. HIZENTRA [Suspect]
     Indication: IMMUNODEFICIENCY COMMON VARIABLE
     Dosage: (8 G 1X/WEEK SUBCUTANEOUS),
     Route: 058
     Dates: start: 20101001
  7. BACTRIM DS [Concomitant]
  8. SIMVASTATIN [Concomitant]
  9. SYNTHROID [Concomitant]

REACTIONS (2)
  - NASOPHARYNGITIS [None]
  - MALIGNANT MELANOMA [None]
